FAERS Safety Report 25237623 (Version 2)
Quarter: 2025Q2

REPORT INFORMATION
  Report Type: Spontaneous
  Country: US (occurrence: US)
  Receive Date: 20250425
  Receipt Date: 20250530
  Transmission Date: 20250717
  Serious: Yes (Hospitalization)
  Sender: JOHNSON AND JOHNSON
  Company Number: US-JNJFOC-20250426950

PATIENT
  Age: 72 Year
  Sex: Female
  Weight: 46.3 kg

DRUGS (4)
  1. TECVAYLI [Suspect]
     Active Substance: TECLISTAMAB-CQYV
     Indication: Plasma cell myeloma
     Dates: start: 20250318
  2. TECVAYLI [Suspect]
     Active Substance: TECLISTAMAB-CQYV
     Dates: start: 20250401
  3. ACYCLO [Concomitant]
     Indication: Prophylaxis
     Route: 048
     Dates: start: 20250318
  4. POSACONAZOLE [Concomitant]
     Active Substance: POSACONAZOLE
     Indication: Prophylaxis
     Route: 048
     Dates: start: 20250221

REACTIONS (6)
  - Immune effector cell-associated neurotoxicity syndrome [Recovering/Resolving]
  - Cellulitis [Recovering/Resolving]
  - Mental status changes [Unknown]
  - Pyrexia [Unknown]
  - Syncope [Unknown]
  - Off label use [Unknown]

NARRATIVE: CASE EVENT DATE: 20250318
